FAERS Safety Report 17061131 (Version 1)
Quarter: 2019Q4

REPORT INFORMATION
  Report Type: Spontaneous
  Country: US (occurrence: US)
  Receive Date: 20191121
  Receipt Date: 20191121
  Transmission Date: 20200122
  Serious: No
  Sender: FDA-Public Use
  Company Number: US-SA-2019SA320144

PATIENT
  Sex: Female

DRUGS (7)
  1. AZELASTINE. [Concomitant]
     Active Substance: AZELASTINE HYDROCHLORIDE
  2. OLOPATADINE. [Concomitant]
     Active Substance: OLOPATADINE
  3. VENTOLIN [Concomitant]
     Active Substance: ALBUTEROL SULFATE
  4. SYMBICORT [Concomitant]
     Active Substance: BUDESONIDE\FORMOTEROL FUMARATE DIHYDRATE
  5. DUPIXENT [Suspect]
     Active Substance: DUPILUMAB
     Indication: NASAL POLYPS
     Dosage: 300 MG, QOW
     Route: 058
  6. ASMANEX [Concomitant]
     Active Substance: MOMETASONE FUROATE
  7. NUVARING [Concomitant]
     Active Substance: ETHINYL ESTRADIOL\ETONOGESTREL

REACTIONS (1)
  - Sneezing [Not Recovered/Not Resolved]
